FAERS Safety Report 19285300 (Version 1)
Quarter: 2021Q2

REPORT INFORMATION
  Report Type: Spontaneous
  Country: FR (occurrence: FR)
  Receive Date: 20210521
  Receipt Date: 20210521
  Transmission Date: 20210717
  Serious: Yes (Hospitalization, Other)
  Sender: FDA-Public Use
  Company Number: FR-UNICHEM PHARMACEUTICALS (USA) INC-UCM202105-000438

PATIENT
  Age: 59 Year
  Sex: Male
  Weight: 85 kg

DRUGS (7)
  1. DILTIAZEM. [Suspect]
     Active Substance: DILTIAZEM
     Indication: OVERDOSE
     Dosage: 200 MG (15 TABLETS MISSING)
  2. LORMETAZEPAM [Suspect]
     Active Substance: LORMETAZEPAM
     Indication: OVERDOSE
     Dosage: 2 MG (15 TABLETS MISSING)
  3. LERCANIDIPINE [Suspect]
     Active Substance: LERCANIDIPINE
     Indication: OVERDOSE
     Dosage: 10 MG (50 TABLETS MISSING)
  4. TRIMEBUTINE [Suspect]
     Active Substance: TRIMEBUTINE
     Indication: OVERDOSE
     Dosage: 20 MG (17 TABLETS MISSING)
  5. FLECAINIDE [Suspect]
     Active Substance: FLECAINIDE
     Indication: OVERDOSE
     Dosage: 150 MG (20 TABLETS MISSING)
  6. RIVAROXABAN [Suspect]
     Active Substance: RIVAROXABAN
     Indication: OVERDOSE
     Dosage: 20 MG (14 TABLETS MISSING)
  7. IRBESARTAN TABLETS [Suspect]
     Active Substance: IRBESARTAN
     Indication: OVERDOSE
     Dosage: 150 MG (50 TABLETS MISSING)

REACTIONS (10)
  - Bradycardia [Recovering/Resolving]
  - Toxicity to various agents [Unknown]
  - Toxicity to various agents [Recovering/Resolving]
  - Overdose [Unknown]
  - Cardiovascular disorder [Recovering/Resolving]
  - Arrhythmia [Recovering/Resolving]
  - Distributive shock [Recovering/Resolving]
  - Coma [Recovering/Resolving]
  - Hypotension [Recovering/Resolving]
  - Acute kidney injury [Recovering/Resolving]
